FAERS Safety Report 5766333-1 (Version None)
Quarter: 2008Q2

REPORT INFORMATION
  Report Type: 
  Country: None (occurrence: None)
  Receive Date: 20080611
  Receipt Date: 20080603
  Transmission Date: 20081010
  Serious: Yes (Hospitalization, Other)
  Sender: FDA-Public Use
  Company Number: US-AMGEN-US272994

PATIENT
  Sex: Male

DRUGS (8)
  1. ARANESP [Suspect]
     Indication: DIALYSIS
     Route: 042
  2. SENSIPAR [Suspect]
     Indication: HYPERPARATHYROIDISM SECONDARY
     Route: 048
     Dates: start: 20050101
  3. ZEMPLAR [Concomitant]
  4. VITAMINS [Concomitant]
  5. PHOSLO [Concomitant]
  6. ZINC [Concomitant]
  7. PRILOSEC [Concomitant]
  8. HUMATROPE [Concomitant]

REACTIONS (6)
  - ARTERIOVENOUS FISTULA SITE INFECTION [None]
  - ARTERIOVENOUS FISTULA THROMBOSIS [None]
  - DRUG HYPERSENSITIVITY [None]
  - KIDNEY TRANSPLANT REJECTION [None]
  - PYREXIA [None]
  - THERAPEUTIC RESPONSE DECREASED [None]
